FAERS Safety Report 6816793-X (Version None)
Quarter: 2010Q3

REPORT INFORMATION
  Report Type: 
  Country: None (occurrence: None)
  Receive Date: 20100706
  Receipt Date: 20100624
  Transmission Date: 20110219
  Serious: Yes (Other)
  Sender: FDA-Public Use
  Company Number: US-JNJFOC-20100503345

PATIENT
  Sex: Male

DRUGS (4)
  1. CHILDREN'S MOTRIN COLD [Suspect]
     Route: 048
  2. CHILDREN'S MOTRIN COLD [Suspect]
     Indication: PYREXIA
     Route: 048
  3. TYLENOL [Suspect]
     Route: 065
  4. TYLENOL [Suspect]
     Indication: PYREXIA
     Route: 065

REACTIONS (4)
  - DRUG INEFFECTIVE [None]
  - DRUG PRESCRIBING ERROR [None]
  - PRODUCT QUALITY ISSUE [None]
  - PYREXIA [None]
